FAERS Safety Report 20317006 (Version 2)
Quarter: 2022Q2

REPORT INFORMATION
  Report Type: Spontaneous
  Country: CA (occurrence: CA)
  Receive Date: 20220110
  Receipt Date: 20220616
  Transmission Date: 20220720
  Serious: Yes (Death)
  Sender: FDA-Public Use
  Company Number: CA-drreddys-SPO/CAN/22/0145691

PATIENT
  Age: 72 Year
  Sex: Male

DRUGS (2)
  1. AZACITIDINE [Suspect]
     Active Substance: AZACITIDINE
     Indication: Myeloproliferative neoplasm
     Dosage: 100MG/VIAL, DOSE: 75MG/M2 FOR 7 DAYS EVERY 28 DAYS
     Route: 051
  2. AZACITIDINE [Suspect]
     Active Substance: AZACITIDINE
     Dosage: DOSE: 75MG/M2 FOR 7 DAYS EVERY 28 DAYS
     Route: 051

REACTIONS (1)
  - Death [Fatal]
